FAERS Safety Report 12618966 (Version 2)
Quarter: 2019Q4

REPORT INFORMATION
  Report Type: Spontaneous
  Country: US (occurrence: US)
  Receive Date: 20160803
  Receipt Date: 20191018
  Transmission Date: 20200122
  Serious: Yes (Other)
  Sender: FDA-Public Use
  Company Number: US-PFIZER INC-2016370120

PATIENT
  Age: 55 Year
  Sex: Male

DRUGS (9)
  1. VIAGRA [Suspect]
     Active Substance: SILDENAFIL CITRATE
     Indication: ERECTILE DYSFUNCTION
     Dosage: 50 MG, (08 TIMES A YEAR)
     Route: 048
     Dates: start: 200408, end: 200411
  2. CIALIS [Suspect]
     Active Substance: TADALAFIL
     Dosage: 5 MG, 1X/DAY
     Dates: start: 201307, end: 201409
  3. VIAGRA [Suspect]
     Active Substance: SILDENAFIL CITRATE
     Dosage: 50 MG, (08 TIMES A YEAR)
     Dates: start: 200706, end: 200709
  4. METFORMIN [Concomitant]
     Active Substance: METFORMIN HYDROCHLORIDE
     Indication: DIABETES PROPHYLAXIS
     Dosage: UNK
     Dates: start: 2000
  5. GEMFIBROZIL. [Concomitant]
     Active Substance: GEMFIBROZIL
     Indication: GOUT
     Dosage: UNK
     Dates: start: 2000, end: 2014
  6. CIALIS [Suspect]
     Active Substance: TADALAFIL
     Dosage: 10 MG, 1X/DAY
     Dates: start: 201307, end: 201409
  7. CIALIS [Suspect]
     Active Substance: TADALAFIL
     Dosage: 10 MG, 1X/DAY
     Dates: end: 200907
  8. CIALIS [Suspect]
     Active Substance: TADALAFIL
     Indication: ERECTILE DYSFUNCTION
     Dosage: 5 MG, 1X/DAY
     Dates: end: 200907
  9. ALLOPURINOL. [Concomitant]
     Active Substance: ALLOPURINOL
     Indication: GOUT
     Dosage: UNK
     Dates: start: 2000

REACTIONS (1)
  - Malignant melanoma [Unknown]

NARRATIVE: CASE EVENT DATE: 20050616
